FAERS Safety Report 4779065-3 (Version None)
Quarter: 2005Q3

REPORT INFORMATION
  Report Type: 
  Country: None (occurrence: None)
  Receive Date: 20050923
  Receipt Date: 20050921
  Transmission Date: 20060218
  Serious: Yes (Life-Threatening, Hospitalization)
  Sender: FDA-Public Use
  Company Number: CHTZ20050001

PATIENT
  Age: 74 Year
  Sex: Male

DRUGS (2)
  1. CAPTOPRIL WITH HCTZ [Suspect]
     Indication: HYPERTENSION
     Dates: end: 20010101
  2. ALLOPURINOL [Suspect]
     Indication: GOUT
     Dates: end: 20010101

REACTIONS (5)
  - BLOOD CULTURE POSITIVE [None]
  - HAEMODYNAMIC INSTABILITY [None]
  - METABOLIC ACIDOSIS [None]
  - SEPSIS [None]
  - TOXIC EPIDERMAL NECROLYSIS [None]
